FAERS Safety Report 7682407-2 (Version None)
Quarter: 2011Q3

REPORT INFORMATION
  Report Type: 
  Country: None (occurrence: None)
  Receive Date: 20110815
  Receipt Date: 20110808
  Transmission Date: 20111222
  Serious: Yes (Other)
  Sender: FDA-Public Use
  Company Number: US-CEPHALON-US025265

PATIENT
  Sex: Female
  Weight: 59 kg

DRUGS (5)
  1. SOMA [Concomitant]
     Indication: MUSCLE SPASMS
     Route: 048
     Dates: start: 20000101
  2. OXYCODONE HCL [Concomitant]
     Route: 048
     Dates: start: 20070101
  3. PROVIGIL [Suspect]
     Indication: SOMNOLENCE
     Route: 048
     Dates: start: 20081222, end: 20090106
  4. OXYCODONE HCL [Concomitant]
     Indication: BACK PAIN
     Route: 048
     Dates: start: 20070101
  5. OXYCONTIN [Concomitant]
     Indication: BACK PAIN
     Route: 048
     Dates: start: 20070101

REACTIONS (10)
  - SKIN EXFOLIATION [None]
  - URTICARIA [None]
  - HYPERSENSITIVITY [None]
  - VOMITING [None]
  - ARTHRALGIA [None]
  - PNEUMONIA [None]
  - RASH ERYTHEMATOUS [None]
  - VISION BLURRED [None]
  - CHEST PAIN [None]
  - HEADACHE [None]
